FAERS Safety Report 14075793 (Version 2)
Quarter: 2017Q4

REPORT INFORMATION
  Report Type: Spontaneous
  Country: US (occurrence: US)
  Receive Date: 20171011
  Receipt Date: 20171212
  Transmission Date: 20180321
  Serious: Yes (Hospitalization)
  Sender: FDA-Public Use
  Company Number: US-NOVOPROD-566239

PATIENT
  Age: 54 Year
  Sex: Female
  Weight: 90.7 kg

DRUGS (3)
  1. VICTOZA [Suspect]
     Active Substance: LIRAGLUTIDE
     Dosage: 1.2 MG, QD
     Route: 058
     Dates: end: 201704
  2. CRESTOR [Concomitant]
     Active Substance: ROSUVASTATIN CALCIUM
     Indication: BLOOD CHOLESTEROL INCREASED
     Dosage: UNK
  3. VICTOZA [Suspect]
     Active Substance: LIRAGLUTIDE
     Indication: TYPE 2 DIABETES MELLITUS
     Dosage: 0.6 MG, QD
     Route: 058
     Dates: start: 2009

REACTIONS (7)
  - Respiratory disorder [Recovered/Resolved]
  - Pancreatitis [Recovered/Resolved]
  - Pancreatitis [Recovered/Resolved]
  - Electrocardiogram T wave inversion [Unknown]
  - Hyperglycaemic hyperosmolar nonketotic syndrome [Unknown]
  - Chest pain [Recovered/Resolved]
  - Acute kidney injury [Recovered/Resolved]

NARRATIVE: CASE EVENT DATE: 2009
